FAERS Safety Report 7227708-7 (Version None)
Quarter: 2011Q1

REPORT INFORMATION
  Report Type: 
  Country: None (occurrence: None)
  Receive Date: 20110114
  Receipt Date: 20101028
  Transmission Date: 20110831
  Serious: Yes (Death, Other)
  Sender: FDA-Public Use
  Company Number: PHHY2010TH90112

PATIENT
  Age: 80 Year
  Sex: Female

DRUGS (1)
  1. ACLASTA [Suspect]
     Indication: OSTEOPOROSIS
     Dosage: 5 MG
     Route: 042
     Dates: start: 20090901

REACTIONS (13)
  - GAIT DISTURBANCE [None]
  - RECTAL HAEMORRHAGE [None]
  - PYREXIA [None]
  - PELVIC FRACTURE [None]
  - HAEMORRHOIDS [None]
  - INTESTINAL MASS [None]
  - PLATELET COUNT DECREASED [None]
  - SKIN DISCOLOURATION [None]
  - DRUG HYPERSENSITIVITY [None]
  - FALL [None]
  - STOMATITIS [None]
  - ABNORMAL FAECES [None]
  - HEADACHE [None]
